FAERS Safety Report 6356456-0 (Version None)
Quarter: 2009Q3

REPORT INFORMATION
  Report Type: 
  Country: None (occurrence: None)
  Receive Date: 20090915
  Receipt Date: 20090908
  Transmission Date: 20100115
  Serious: Yes (Hospitalization)
  Sender: FDA-Public Use
  Company Number: A0806818A

PATIENT
  Age: 63 Year
  Sex: Male
  Weight: 140 kg

DRUGS (9)
  1. AVANDIA [Suspect]
     Dosage: 8MG PER DAY
     Route: 048
     Dates: start: 19991001
  2. DIABETA [Concomitant]
  3. GLUCOPHAGE [Concomitant]
  4. VASOTEC [Concomitant]
  5. HYDROCHLOROTHIAZIDE [Concomitant]
  6. TIAZAC [Concomitant]
  7. SULINDAC [Concomitant]
  8. WELLBUTRIN [Concomitant]
  9. ALLOPURINOL [Concomitant]

REACTIONS (4)
  - CARDIAC FAILURE CONGESTIVE [None]
  - MYOCARDIAL ISCHAEMIA [None]
  - PAIN [None]
  - SILENT MYOCARDIAL INFARCTION [None]
